FAERS Safety Report 9934297 (Version 2)
Quarter: 2014Q1

REPORT INFORMATION
  Report Type: Report from Study
  Country: US (occurrence: US)
  Receive Date: 20140228
  Receipt Date: 20140305
  Transmission Date: 20141002
  Serious: Yes (Death)
  Sender: FDA-Public Use
  Company Number: US-SA-2014SA025468

PATIENT
  Sex: Female

DRUGS (9)
  1. DOCETAXEL [Suspect]
     Indication: OVARIAN CANCER
     Route: 065
  2. DOCETAXEL [Suspect]
     Indication: MALIGNANT PERITONEAL NEOPLASM
     Route: 065
  3. DOCETAXEL [Suspect]
     Indication: FALLOPIAN TUBE CANCER
     Route: 065
  4. OXALIPLATIN [Suspect]
     Indication: OVARIAN CANCER
     Route: 065
  5. OXALIPLATIN [Suspect]
     Indication: MALIGNANT PERITONEAL NEOPLASM
     Route: 065
  6. OXALIPLATIN [Suspect]
     Indication: FALLOPIAN TUBE CANCER
     Route: 065
  7. BEVACIZUMAB [Suspect]
     Indication: OVARIAN CANCER
     Route: 065
  8. BEVACIZUMAB [Suspect]
     Indication: MALIGNANT PERITONEAL NEOPLASM
     Route: 065
  9. BEVACIZUMAB [Suspect]
     Indication: FALLOPIAN TUBE CANCER
     Route: 065

REACTIONS (1)
  - Gastrointestinal perforation [Fatal]
